FAERS Safety Report 5465705-2 (Version None)
Quarter: 2007Q3

REPORT INFORMATION
  Report Type: 
  Country: None (occurrence: None)
  Receive Date: 20070919
  Receipt Date: 20070919
  Transmission Date: 20080115
  Serious: Yes (Other)
  Sender: FDA-Public Use
  Company Number: None

PATIENT
  Age: 52 Year
  Sex: Male

DRUGS (9)
  1. METFORMIN HCL ER TABS 500MG [Suspect]
     Indication: DIABETES MELLITUS
     Dosage: 2 TABLETS TWICE A DAY
     Dates: start: 20070418, end: 20070516
  2. CIPRO [Concomitant]
  3. IRON TABLETS [Concomitant]
  4. ACIPHEX [Concomitant]
  5. COZAAR [Concomitant]
  6. LOPID [Concomitant]
  7. CENTRUM [Concomitant]
  8. FISH OIL [Concomitant]
  9. JANUMET [Concomitant]

REACTIONS (3)
  - BLOOD GLUCOSE INCREASED [None]
  - MEDICATION RESIDUE [None]
  - PHARMACEUTICAL PRODUCT COMPLAINT [None]
